FAERS Safety Report 16274684 (Version 1)
Quarter: 2019Q2

REPORT INFORMATION
  Report Type: Report from Study
  Country: US (occurrence: US)
  Receive Date: 20190506
  Receipt Date: 20190506
  Transmission Date: 20190711
  Serious: Yes (Hospitalization, Other)
  Sender: FDA-Public Use
  Company Number: US-ROCHE-2308982

PATIENT

DRUGS (8)
  1. ENCORAFENIB [Suspect]
     Active Substance: ENCORAFENIB
     Indication: MALIGNANT MELANOMA
     Route: 065
  2. BINIMETINIB [Suspect]
     Active Substance: BINIMETINIB
     Indication: MALIGNANT MELANOMA
     Route: 065
  3. IPILIMUMAB [Suspect]
     Active Substance: IPILIMUMAB
     Indication: MALIGNANT MELANOMA
     Route: 065
  4. COBIMETINIB. [Suspect]
     Active Substance: COBIMETINIB
     Indication: MALIGNANT MELANOMA
     Route: 065
  5. NIVOLUMAB [Suspect]
     Active Substance: NIVOLUMAB
     Indication: MALIGNANT MELANOMA
     Route: 065
  6. TRAMETINIB [Suspect]
     Active Substance: TRAMETINIB
     Indication: MALIGNANT MELANOMA
     Route: 065
  7. VEMURAFENIB. [Suspect]
     Active Substance: VEMURAFENIB
     Indication: MALIGNANT MELANOMA
     Route: 065
  8. DABRAFENIB [Suspect]
     Active Substance: DABRAFENIB
     Indication: MALIGNANT MELANOMA
     Route: 065

REACTIONS (32)
  - Cytopenia [Unknown]
  - Haemorrhage [Unknown]
  - Pneumonitis [Unknown]
  - Arthralgia [Unknown]
  - Pyrexia [Unknown]
  - Asthenia [Unknown]
  - Nausea [Unknown]
  - Ejection fraction decreased [Unknown]
  - Alanine aminotransferase increased [Unknown]
  - Myopathy [Unknown]
  - Vomiting [Unknown]
  - Nephropathy toxic [Unknown]
  - Fatigue [Unknown]
  - Rash [Unknown]
  - Seizure [Unknown]
  - Deafness neurosensory [Unknown]
  - Mitral valve incompetence [Unknown]
  - Meningitis aseptic [Unknown]
  - Aspartate aminotransferase increased [Unknown]
  - Uveitis [Unknown]
  - Cough [Unknown]
  - Sinusitis [Unknown]
  - Photosensitivity reaction [Unknown]
  - Diarrhoea [Unknown]
  - Atrial fibrillation [Unknown]
  - Acute kidney injury [Unknown]
  - Periorbital oedema [Unknown]
  - Oedema [Unknown]
  - Hypertension [Unknown]
  - Myalgia [Unknown]
  - Headache [Unknown]
  - Stomatitis [Unknown]
